FAERS Safety Report 14114297 (Version 3)
Quarter: 2017Q4

REPORT INFORMATION
  Report Type: Spontaneous
  Country: TW (occurrence: TW)
  Receive Date: 20171023
  Receipt Date: 20171109
  Transmission Date: 20180321
  Serious: Yes (Life-Threatening, Hospitalization, Other)
  Sender: FDA-Public Use
  Company Number: TW-BRISTOL-MYERS SQUIBB COMPANY-BMS-2017-094416

PATIENT
  Age: 62 Year
  Sex: Female
  Weight: 48 kg

DRUGS (2)
  1. OPDIVO [Suspect]
     Active Substance: NIVOLUMAB
     Indication: CHONDROSARCOMA
     Route: 042
  2. PAZOPANIB [Suspect]
     Active Substance: PAZOPANIB
     Indication: CHONDROSARCOMA
     Dosage: 600 MG, QD
     Route: 048
     Dates: start: 20171013, end: 20171017

REACTIONS (4)
  - Product use in unapproved indication [Unknown]
  - Dyspnoea [Unknown]
  - Groin pain [Unknown]
  - Malignant neoplasm progression [Unknown]

NARRATIVE: CASE EVENT DATE: 20171017
